FAERS Safety Report 12724302 (Version 1)
Quarter: 2016Q3

REPORT INFORMATION
  Report Type: Spontaneous
  Country: US (occurrence: US)
  Receive Date: 20160908
  Receipt Date: 20160908
  Transmission Date: 20161109
  Serious: Yes (Hospitalization)
  Sender: FDA-Public Use
  Company Number: None

PATIENT
  Age: 91 Year
  Sex: Female

DRUGS (1)
  1. TOBRAMYCIN 300MG/5ML [Suspect]
     Active Substance: TOBRAMYCIN
     Indication: BRONCHIECTASIS
     Route: 055
     Dates: start: 20151201, end: 20160906

REACTIONS (1)
  - Pneumonia [None]

NARRATIVE: CASE EVENT DATE: 20160804
